FAERS Safety Report 25708540 (Version 4)
Quarter: 2025Q4

REPORT INFORMATION
  Report Type: Spontaneous
  Country: US (occurrence: US)
  Receive Date: 20250821
  Receipt Date: 20251103
  Transmission Date: 20260118
  Serious: No
  Sender: GLAXOSMITHKLINE
  Company Number: US-GSK-US2025094580

PATIENT
  Age: 65 Year
  Sex: Female

DRUGS (1)
  1. BREO ELLIPTA [Suspect]
     Active Substance: FLUTICASONE FUROATE\VILANTEROL TRIFENATATE
     Indication: Asthma-chronic obstructive pulmonary disease overlap syndrome
     Dosage: 1 PUFF(S) 200/25MCG , QD
     Dates: start: 2025

REACTIONS (3)
  - Exposure via skin contact [Unknown]
  - Accidental exposure to product packaging [Unknown]
  - Product complaint [Unknown]

NARRATIVE: CASE EVENT DATE: 20250723
